FAERS Safety Report 20242811 (Version 3)
Quarter: 2022Q1

REPORT INFORMATION
  Report Type: Spontaneous
  Country: US (occurrence: US)
  Receive Date: 20211228
  Receipt Date: 20220223
  Transmission Date: 20220423
  Serious: Yes (Hospitalization, Other)
  Sender: FDA-Public Use
  Company Number: US-Blueprint Medicines Corporation-SP-US-2021-002624

PATIENT
  Age: 55 Year
  Sex: Female

DRUGS (1)
  1. AYVAKIT [Suspect]
     Active Substance: AVAPRITINIB
     Indication: Gastrointestinal stromal tumour
     Dosage: TAKE 1 TABLET BY MOUTH DAILY. TAKE ON EMPTY STOMACH, AT LEAST ONE HOUR BEFORE AND TWO HOURS AFTER A
     Route: 048
     Dates: start: 20190101

REACTIONS (6)
  - Infection [Not Recovered/Not Resolved]
  - Elbow operation [Not Recovered/Not Resolved]
  - Limb operation [Not Recovered/Not Resolved]
  - Fluid retention [Not Recovered/Not Resolved]
  - Muscular weakness [Not Recovered/Not Resolved]
  - COVID-19 [Recovering/Resolving]

NARRATIVE: CASE EVENT DATE: 20211220
